FAERS Safety Report 7784854-7 (Version None)
Quarter: 2011Q3

REPORT INFORMATION
  Report Type: 
  Country: None (occurrence: None)
  Receive Date: 20110928
  Receipt Date: 20110919
  Transmission Date: 20111222
  Serious: Yes (Other)
  Sender: FDA-Public Use
  Company Number: CA-ASTRAZENECA-2011SE56196

PATIENT
  Age: 50 Year
  Sex: Male
  Weight: 70.3 kg

DRUGS (1)
  1. VIMOVO [Suspect]
     Dosage: 500 MG TWO TIMES A DAY
     Route: 048

REACTIONS (3)
  - RASH PRURITIC [None]
  - RASH ERYTHEMATOUS [None]
  - OEDEMA MOUTH [None]
